FAERS Safety Report 17015525 (Version 2)
Quarter: 2019Q4

REPORT INFORMATION
  Report Type: Report from Study
  Country: US (occurrence: US)
  Receive Date: 20191111
  Receipt Date: 20191129
  Transmission Date: 20200122
  Serious: No
  Sender: FDA-Public Use
  Company Number: US-BEH-2019109191

PATIENT
  Age: 59 Year
  Sex: Female
  Weight: 109.75 kg

DRUGS (1)
  1. HIZENTRA [Suspect]
     Active Substance: HUMAN IMMUNOGLOBULIN G
     Dosage: UNK UNK, QW
     Route: 065
     Dates: start: 20190311

REACTIONS (6)
  - Malaise [Unknown]
  - Nausea [Unknown]
  - Skin atrophy [Unknown]
  - Feeling abnormal [Unknown]
  - Rash [Unknown]
  - Fatigue [Unknown]
